FAERS Safety Report 5814318-9 (Version None)
Quarter: 2008Q3

REPORT INFORMATION
  Report Type: 
  Country: None (occurrence: None)
  Receive Date: 20080715
  Receipt Date: 20080701
  Transmission Date: 20090109
  Serious: Yes (Hospitalization)
  Sender: FDA-Public Use
  Company Number: 2008001558

PATIENT
  Age: 51 Year
  Sex: Male

DRUGS (10)
  1. ERLOTINIB (ERLOTINIB) [Suspect]
     Indication: HEPATIC NEOPLASM MALIGNANT NON-RESECTABLE
     Dosage: (150 MG, QD), ORAL
     Route: 048
     Dates: start: 20080531
  2. BEVACIZUMAB              (INJECTION FOR INFUSION) [Suspect]
     Dosage: (10 MG/KG, Q2W), INTRAVENOUS
     Route: 042
     Dates: start: 20080531
  3. INDERAL [Concomitant]
  4. SPIRONOLACTONE [Concomitant]
  5. LASIX [Concomitant]
  6. ZOLPIDEM TARTRATE [Concomitant]
  7. AVANDIA [Concomitant]
  8. NIFEDIPINE ER          (NIFEDIPINE) [Concomitant]
  9. AMILORIDE HCL [Concomitant]
  10. ACYCLOVIR [Concomitant]

REACTIONS (3)
  - AMMONIA INCREASED [None]
  - DEPRESSED LEVEL OF CONSCIOUSNESS [None]
  - LEUKOENCEPHALOPATHY [None]
